FAERS Safety Report 15139809 (Version 2)
Quarter: 2019Q1

REPORT INFORMATION
  Report Type: Report from Study
  Country: US (occurrence: US)
  Receive Date: 20180713
  Receipt Date: 20190206
  Transmission Date: 20190417
  Serious: Yes (Other)
  Sender: FDA-Public Use
  Company Number: US-SA-2018SA183653

PATIENT
  Age: 40 Year
  Sex: Female

DRUGS (14)
  1. CALCIUM [Concomitant]
     Active Substance: CALCIUM
  2. BIOTIN [Concomitant]
     Active Substance: BIOTIN
  3. CYMBALTA [Concomitant]
     Active Substance: DULOXETINE HYDROCHLORIDE
  4. SINGULAIR [Concomitant]
     Active Substance: MONTELUKAST SODIUM
  5. TIZANIDINE. [Concomitant]
     Active Substance: TIZANIDINE
  6. TERIFLUNOMIDE. [Suspect]
     Active Substance: TERIFLUNOMIDE
     Indication: MULTIPLE SCLEROSIS
     Dosage: 7 MG, QD
     Dates: start: 201805
  7. TOPIRAMATE. [Concomitant]
     Active Substance: TOPIRAMATE
  8. VITAMIN D2 [Concomitant]
     Active Substance: ERGOCALCIFEROL
  9. XANAX [Concomitant]
     Active Substance: ALPRAZOLAM
  10. SYNTHROID [Concomitant]
     Active Substance: LEVOTHYROXINE SODIUM
  11. PROBIOTIN [Concomitant]
  12. DOXYCYCLINE. [Concomitant]
     Active Substance: DOXYCYCLINE
  13. CLONAZEPAM. [Concomitant]
     Active Substance: CLONAZEPAM
  14. TURMERIC [CURCUMA LONGA] [Concomitant]

REACTIONS (3)
  - Eye swelling [Recovered/Resolved]
  - Alopecia [Recovered/Resolved]
  - Urticaria [Recovered/Resolved]
